FAERS Safety Report 12918026 (Version 1)
Quarter: 2016Q4

REPORT INFORMATION
  Report Type: Spontaneous
  Country: US (occurrence: US)
  Receive Date: 20161107
  Receipt Date: 20161107
  Transmission Date: 20170207
  Serious: No
  Sender: FDA-Public Use
  Company Number: US-ALLERGAN-1659522US

PATIENT
  Age: 57 Year
  Sex: Male
  Weight: 68.27 kg

DRUGS (1)
  1. RAPAFLO [Suspect]
     Active Substance: SILODOSIN
     Indication: DYSURIA
     Dosage: UNK
     Route: 048

REACTIONS (2)
  - Dizziness [Not Recovered/Not Resolved]
  - Bladder irritation [Recovered/Resolved]
